FAERS Safety Report 9098058 (Version 2)
Quarter: 2013Q1

REPORT INFORMATION
  Report Type: Spontaneous
  Country: NO (occurrence: NO)
  Receive Date: 20130213
  Receipt Date: 20130301
  Transmission Date: 20140127
  Serious: Yes (Other)
  Sender: FDA-Public Use
  Company Number: NO-AMGEN-NORSP2013008210

PATIENT
  Sex: Female

DRUGS (4)
  1. PROLIA [Suspect]
     Indication: OSTEOPOROSIS POSTMENOPAUSAL
     Dosage: UNK
     Dates: start: 201202
  2. PREDNISOLONE [Concomitant]
     Indication: COLITIS MICROSCOPIC
  3. NEURONTIN [Concomitant]
     Indication: NEURALGIA
     Dosage: 600 MG, Q6H
  4. PARACET                            /00020001/ [Concomitant]
     Indication: ANALGESIC THERAPY

REACTIONS (4)
  - Spinal fracture [Unknown]
  - Sciatica [Unknown]
  - Myalgia [Recovering/Resolving]
  - Pain in extremity [Unknown]
